FAERS Safety Report 6987649-7 (Version None)
Quarter: 2010Q3

REPORT INFORMATION
  Report Type: 
  Country: None (occurrence: None)
  Receive Date: 20100914
  Receipt Date: 20100830
  Transmission Date: 20110219
  Serious: Yes (Death)
  Sender: FDA-Public Use
  Company Number: 010903

PATIENT
  Age: 56 Year
  Sex: Male

DRUGS (1)
  1. SAMSCA [Suspect]
     Indication: INAPPROPRIATE ANTIDIURETIC HORMONE SECRETION

REACTIONS (2)
  - POST PROCEDURAL COMPLICATION [None]
  - SEPTIC SHOCK [None]
